FAERS Safety Report 4759637-2 (Version None)
Quarter: 2005Q3

REPORT INFORMATION
  Report Type: 
  Country: None (occurrence: None)
  Receive Date: 20050901
  Receipt Date: 20050524
  Transmission Date: 20060218
  Serious: Yes (Hospitalization, Disabling)
  Sender: FDA-Public Use
  Company Number: US-MERCK-0505USA02912

PATIENT
  Age: 53 Year
  Sex: Male
  Weight: 85 kg

DRUGS (1)
  1. VIOXX [Suspect]
     Indication: OSTEOARTHRITIS
     Route: 048
     Dates: start: 19990608, end: 20040901

REACTIONS (4)
  - ARTHROPATHY [None]
  - ATHEROSCLEROSIS [None]
  - MYOCARDIAL INFARCTION [None]
  - ROTATOR CUFF REPAIR [None]
